FAERS Safety Report 21640854 (Version 2)
Quarter: 2023Q1

REPORT INFORMATION
  Report Type: Report from Study
  Country: GR (occurrence: GR)
  Receive Date: 20221125
  Receipt Date: 20230216
  Transmission Date: 20230417
  Serious: Yes (Other)
  Sender: FDA-Public Use
  Company Number: GR-ABBVIE-4208192

PATIENT
  Age: 76 Year
  Sex: Male
  Weight: 67 kg

DRUGS (12)
  1. VENETOCLAX [Suspect]
     Active Substance: VENETOCLAX
     Indication: Acute myeloid leukaemia
     Route: 048
     Dates: start: 20220905, end: 20220922
  2. VENETOCLAX [Suspect]
     Active Substance: VENETOCLAX
     Indication: Acute myeloid leukaemia
     Route: 048
     Dates: end: 20220922
  3. PIPERACILLIN [Concomitant]
     Active Substance: PIPERACILLIN
     Indication: Febrile neutropenia
     Route: 048
     Dates: start: 20220923, end: 20220930
  4. ENTECAVIR [Concomitant]
     Active Substance: ENTECAVIR
     Indication: Antiviral prophylaxis
     Dosage: 0.5MG
     Route: 048
     Dates: start: 20220923, end: 20221017
  5. LEVOFLOXACIN [Concomitant]
     Active Substance: LEVOFLOXACIN
     Indication: Febrile neutropenia
     Route: 048
     Dates: start: 20220925, end: 20220930
  6. Teicoplanin/noridem [Concomitant]
     Indication: Antiviral prophylaxis
     Route: 048
     Dates: start: 20220923, end: 20220930
  7. VALACICLOVIR/ACTAVIS [Concomitant]
     Indication: Antiviral prophylaxis
     Route: 048
     Dates: start: 20220923, end: 20220930
  8. CALCIUM [Concomitant]
     Active Substance: CALCIUM
     Indication: Prophylaxis
     Route: 048
     Dates: start: 20220923, end: 20220930
  9. PIPERACILLIN AND TAZOBACTAM [Concomitant]
     Active Substance: PIPERACILLIN SODIUM\TAZOBACTAM SODIUM
     Indication: Antiviral prophylaxis
     Route: 048
     Dates: start: 20220923, end: 20220930
  10. PREGABALIN [Concomitant]
     Active Substance: PREGABALIN
     Indication: Anxiety
     Route: 048
     Dates: start: 20220923, end: 20220930
  11. TRANEXAMIC ACIDE [Concomitant]
     Indication: Haemorrhage prophylaxis
     Dosage: TIME INTERVAL: 0.33333333 DAYS
     Route: 048
     Dates: start: 20220923, end: 20221010
  12. Febuxostat/genepharm [Concomitant]
     Indication: Gouty arthritis
     Route: 048
     Dates: start: 20220923, end: 20221017

REACTIONS (3)
  - Platelet transfusion [Unknown]
  - Febrile neutropenia [Recovered/Resolved]
  - Pyrexia [Unknown]

NARRATIVE: CASE EVENT DATE: 20220923
